FAERS Safety Report 8518677-8 (Version None)
Quarter: 2012Q3

REPORT INFORMATION
  Report Type: 
  Country: None (occurrence: None)
  Receive Date: 20120718
  Receipt Date: 20110705
  Transmission Date: 20120928
  Serious: No
  Sender: FDA-Public Use
  Company Number: US-BRISTOL-MYERS SQUIBB COMPANY-15803513

PATIENT
  Age: 71 Year
  Sex: Male

DRUGS (5)
  1. COUMADIN [Suspect]
     Dates: start: 20030101
  2. FISH OIL [Concomitant]
  3. TRICOR [Concomitant]
  4. GLIMEPIRIDE [Concomitant]
  5. JANUVIA [Concomitant]

REACTIONS (1)
  - INTERNATIONAL NORMALISED RATIO DECREASED [None]
